FAERS Safety Report 22345497 (Version 1)
Quarter: 2023Q2

REPORT INFORMATION
  Report Type: Spontaneous
  Country: CA (occurrence: CA)
  Receive Date: 20230519
  Receipt Date: 20230519
  Transmission Date: 20230722
  Serious: Yes (Hospitalization, Other)
  Sender: FDA-Public Use
  Company Number: CA-PFIZER INC-202300193484

PATIENT
  Age: 10 Month
  Sex: Male

DRUGS (2)
  1. SOMATROPIN [Suspect]
     Active Substance: SOMATROPIN
     Indication: Prader-Willi syndrome
     Dosage: 200 UG, EVERY 6 WEEKS
     Route: 058
     Dates: start: 20221003, end: 2023
  2. SOMATROPIN [Suspect]
     Active Substance: SOMATROPIN
     Dosage: 400 UG, EVERY 6 WEEKS
     Route: 058
     Dates: start: 2023

REACTIONS (3)
  - Respiratory tract infection [Recovered/Resolved]
  - Obstructive sleep apnoea syndrome [Recovering/Resolving]
  - Off label use [Unknown]

NARRATIVE: CASE EVENT DATE: 20221003
